FAERS Safety Report 17010531 (Version 1)
Quarter: 2019Q4

REPORT INFORMATION
  Report Type: Spontaneous
  Country: US (occurrence: US)
  Receive Date: 20191107
  Receipt Date: 20191107
  Transmission Date: 20200122
  Serious: Yes (Hospitalization)
  Sender: FDA-Public Use
  Company Number: None

PATIENT
  Sex: Female

DRUGS (18)
  1. COSENTYX [Suspect]
     Active Substance: SECUKINUMAB
     Indication: PSORIATIC ARTHROPATHY
     Dosage: ?          OTHER FREQUENCY:EVERY 4 WEEKS;?
     Route: 058
     Dates: start: 20190723
  2. LEVOTHYROXIN [Concomitant]
     Active Substance: LEVOTHYROXINE
  3. LISINOPRIL. [Concomitant]
     Active Substance: LISINOPRIL
  4. MELOXICAM. [Concomitant]
     Active Substance: MELOXICAM
  5. VITAMIN D [Concomitant]
     Active Substance: VITAMIN D NOS
  6. DULOXETINE. [Concomitant]
     Active Substance: DULOXETINE
  7. GABAPENTIN. [Concomitant]
     Active Substance: GABAPENTIN
  8. PRIMIDONE. [Concomitant]
     Active Substance: PRIMIDONE
  9. FLUTICASONE. [Concomitant]
     Active Substance: FLUTICASONE
  10. FOLIC ACID. [Concomitant]
     Active Substance: FOLIC ACID
  11. MECLIZINE [Concomitant]
     Active Substance: MECLIZINE HYDROCHLORIDE
  12. PREDNISONE. [Concomitant]
     Active Substance: PREDNISONE
  13. BACLOFEN. [Concomitant]
     Active Substance: BACLOFEN
  14. METHOTREXATE. [Concomitant]
     Active Substance: METHOTREXATE
  15. MONTELUKAST [Concomitant]
     Active Substance: MONTELUKAST SODIUM
  16. PRAVASTATIN. [Concomitant]
     Active Substance: PRAVASTATIN
  17. CERTRIZINE [Concomitant]
  18. VICTOZA [Concomitant]
     Active Substance: LIRAGLUTIDE

REACTIONS (2)
  - Therapy cessation [None]
  - Surgery [None]
